FAERS Safety Report 8189150-4 (Version None)
Quarter: 2012Q1

REPORT INFORMATION
  Report Type: 
  Country: None (occurrence: None)
  Receive Date: 20120306
  Receipt Date: 20120306
  Transmission Date: 20120608
  Serious: Yes (Other)
  Sender: FDA-Public Use
  Company Number: None

PATIENT
  Age: 58 Year
  Sex: Female
  Weight: 51.7101 kg

DRUGS (1)
  1. BONIVA [Suspect]
     Indication: OSTEOPENIA
     Dosage: ONE TABLET ONCE MONTHLY BY MOUTH
     Route: 048
     Dates: start: 20100101, end: 20100701

REACTIONS (6)
  - GASTROINTESTINAL PAIN [None]
  - CHILLS [None]
  - BONE PAIN [None]
  - SYNCOPE [None]
  - NAUSEA [None]
  - MUSCULOSKELETAL PAIN [None]
